FAERS Safety Report 13397368 (Version 3)
Quarter: 2017Q2

REPORT INFORMATION
  Report Type: Report from Study
  Country: US (occurrence: US)
  Receive Date: 20170403
  Receipt Date: 20170421
  Transmission Date: 20170830
  Serious: No
  Sender: FDA-Public Use
  Company Number: US-PFIZER INC-2017132471

PATIENT
  Age: 16 Year
  Sex: Male
  Weight: 69.6 kg

DRUGS (17)
  1. CYCLOPHOSPHAMIDE. [Concomitant]
     Active Substance: CYCLOPHOSPHAMIDE
     Indication: ANAPLASTIC LARGE CELL LYMPHOMA T- AND NULL-CELL TYPES
     Dosage: 200 MG/M2, CYCLIC, OVER 15-30 MINUTES ON DAYS 1 AND 2 (PROPHASE)
     Route: 042
     Dates: start: 20151229
  2. METHOTREXATE SODIUM. [Concomitant]
     Active Substance: METHOTREXATE SODIUM
     Dosage: 3000 MG/M2, OVER 3 HOURS ON DAY 1 (COURSE A)
     Route: 042
  3. ETOPOSIDE. [Concomitant]
     Active Substance: ETOPOSIDE
     Indication: ANAPLASTIC LARGE CELL LYMPHOMA T- AND NULL-CELL TYPES
     Dosage: 100 MG/M2, CYCLIC, CYCLES 1, 3 AND 5 (CYCLE OF 21 DAYS) OVER 2 HOURS ON DAYS 4 AND 5 (COURSE A)
     Route: 042
  4. IFOSFAMIDE. [Concomitant]
     Active Substance: IFOSFAMIDE
     Indication: ANAPLASTIC LARGE CELL LYMPHOMA T- AND NULL-CELL TYPES
     Dosage: 800 MG/M2, CYCLIC, CYCLES 1, 3 AND 5 (CYCLE= 21 DAYS) OVER 60 MIN ON DAYS 1-5 (COURSE A)
     Route: 042
  5. MESNA. [Concomitant]
     Active Substance: MESNA
     Indication: CHEMOTHERAPY
     Dosage: UNK
     Route: 042
     Dates: start: 20160217, end: 20160221
  6. METHOTREXATE SODIUM. [Concomitant]
     Active Substance: METHOTREXATE SODIUM
     Dosage: 3000 MG/M2, OVER 3 HOURS ON DAY 1 (COURSE B)
     Route: 042
  7. CYTARABINE. [Concomitant]
     Active Substance: CYTARABINE
     Dosage: 150 MG/M2, OVER 1-30 MINUTES Q12 HOURS ON DAYS 4 AND 5 (TOTAL 4 DOSES) (COURSE A)
     Route: 042
  8. HYDROCORTISONE. [Concomitant]
     Active Substance: HYDROCORTISONE
     Indication: ANAPLASTIC LARGE CELL LYMPHOMA T- AND NULL-CELL TYPES
     Dosage: 7.5-12MG ON DAY 1 (AGE BASED DOSING) (PROPHASE)
     Route: 037
     Dates: start: 20151229, end: 20151229
  9. METHOTREXATE SODIUM. [Concomitant]
     Active Substance: METHOTREXATE SODIUM
     Indication: ANAPLASTIC LARGE CELL LYMPHOMA T- AND NULL-CELL TYPES
     Dosage: 7.5-12MG ON DAY 1 (AGE BASED DOSING) (PROPHASE)
     Route: 037
     Dates: start: 20151229
  10. DEXAMETHASONE. [Concomitant]
     Active Substance: DEXAMETHASONE
     Dosage: 5 MG/M2, BID ON DAYS 1-5 (COURSE A)
     Route: 048
  11. CRIZOTINIB [Suspect]
     Active Substance: CRIZOTINIB
     Indication: ANAPLASTIC LARGE CELL LYMPHOMA T- AND NULL-CELL TYPES
     Dosage: 250 MG, 2X/DAY; 165 MG/M2, TWICE DAILY ON DAYS 1-21 (COURSE A, B)
     Route: 048
     Dates: start: 20160104, end: 20160512
  12. CYTARABINE. [Concomitant]
     Active Substance: CYTARABINE
     Indication: ANAPLASTIC LARGE CELL LYMPHOMA T- AND NULL-CELL TYPES
     Dosage: 15-24MG ON DAY 1 (AGE BASED DOSING). (PROPHASE)
     Route: 037
     Dates: start: 20151229
  13. CYCLOPHOSPHAMIDE. [Concomitant]
     Active Substance: CYCLOPHOSPHAMIDE
     Dosage: 200 MG/M2, CYCLIC, CYCLES 2, 4 AND 6 (CYCLE= 21 DAYS) OVER 15-30 MINUTES ON DAYS 1-5 (COURSE B)
     Route: 042
  14. DEXAMETHASONE. [Concomitant]
     Active Substance: DEXAMETHASONE
     Indication: ANAPLASTIC LARGE CELL LYMPHOMA T- AND NULL-CELL TYPES
     Dosage: 5 MG/M2, CYCLIC, ON DAYS 1-2 (PROPHASE)
     Route: 048
     Dates: start: 20151229
  15. DEXAMETHASONE. [Concomitant]
     Active Substance: DEXAMETHASONE
     Dosage: 5 MG/M2, CYCLIC, ON DAYS 3-5 (PROPHASE)
     Route: 048
  16. DEXAMETHASONE. [Concomitant]
     Active Substance: DEXAMETHASONE
     Dosage: 5 MG/M2, BID ON DAYS 1-5 (COURSE B)
     Route: 048
  17. DOXORUBICIN HYDROCHLORIDE. [Concomitant]
     Active Substance: DOXORUBICIN HYDROCHLORIDE
     Indication: ANAPLASTIC LARGE CELL LYMPHOMA T- AND NULL-CELL TYPES
     Dosage: 25 MG/M2, CYCLIC.CYCLES 2, 4 AND 6 (CYCLE OF 21 DAYS) OVER 1-15 MIN ON DAYS 4 AND 5 (COURSE B)
     Route: 042

REACTIONS (1)
  - Embolism [Recovered/Resolved]

NARRATIVE: CASE EVENT DATE: 20160308
